FAERS Safety Report 11936323 (Version 1)
Quarter: 2016Q1

REPORT INFORMATION
  Report Type: Spontaneous
  Country: US (occurrence: US)
  Receive Date: 20160121
  Receipt Date: 20160121
  Transmission Date: 20160526
  Serious: Yes (Death)
  Sender: FDA-Public Use
  Company Number: US-ASTELLAS-2016US002332

PATIENT
  Age: 78 Year
  Sex: Female

DRUGS (1)
  1. TARCEVA [Suspect]
     Active Substance: ERLOTINIB HYDROCHLORIDE
     Indication: PRODUCT USED FOR UNKNOWN INDICATION
     Dosage: 100 MG, ONCE IN TWO DAYS
     Route: 048
     Dates: start: 20130725, end: 20160107

REACTIONS (2)
  - Blood pressure abnormal [Unknown]
  - Death [Fatal]

NARRATIVE: CASE EVENT DATE: 20160107
